FAERS Safety Report 12759869 (Version 3)
Quarter: 2016Q4

REPORT INFORMATION
  Report Type: Spontaneous
  Country: TH (occurrence: TH)
  Receive Date: 20160919
  Receipt Date: 20161031
  Transmission Date: 20170207
  Serious: Yes (Other)
  Sender: FDA-Public Use
  Company Number: TH-JNJFOC-20160915824

PATIENT
  Age: 36 Year
  Sex: Male

DRUGS (8)
  1. SPORANOX [Suspect]
     Active Substance: ITRACONAZOLE
     Indication: KERATITIS FUNGAL
     Route: 048
  2. AMPHOTERICIN B. [Suspect]
     Active Substance: AMPHOTERICIN B
     Indication: KERATITIS FUNGAL
     Dosage: 0.3% AMPHOTERICIN B EYE DROPS
     Route: 065
  3. ATROPINE. [Suspect]
     Active Substance: ATROPINE
     Indication: KERATITIS FUNGAL
     Dosage: 1% ATROPINE TWO??TIMES A DAY
     Route: 065
  4. KETOCONAZOLE. [Suspect]
     Active Substance: KETOCONAZOLE
     Indication: KERATITIS FUNGAL
     Route: 048
  5. MOXIFLOXACIN. [Suspect]
     Active Substance: MOXIFLOXACIN
     Indication: KERATITIS FUNGAL
     Route: 061
  6. ATROPINE. [Suspect]
     Active Substance: ATROPINE
     Indication: KERATITIS FUNGAL
     Route: 065
  7. KETOCONAZOLE. [Suspect]
     Active Substance: KETOCONAZOLE
     Indication: KERATITIS FUNGAL
     Dosage: 2% KETOCONAZOLE EYE DROPS HOURLY,
     Route: 065
  8. AMPHOTERICIN B. [Suspect]
     Active Substance: AMPHOTERICIN B
     Indication: KERATITIS FUNGAL
     Route: 065

REACTIONS (2)
  - Visual impairment [Unknown]
  - Drug ineffective [Unknown]
